FAERS Safety Report 19510108 (Version 1)
Quarter: 2021Q3

REPORT INFORMATION
  Report Type: Spontaneous
  Country: US (occurrence: US)
  Receive Date: 20210708
  Receipt Date: 20210708
  Transmission Date: 20211014
  Serious: Yes (Other)
  Sender: FDA-Public Use
  Company Number: US-ENDO PHARMACEUTICALS INC-2021-002202

PATIENT
  Age: 82 Year
  Sex: Male

DRUGS (6)
  1. RANITIDINE HYDROCHLORIDE. [Suspect]
     Active Substance: RANITIDINE HYDROCHLORIDE
     Dosage: 300 MG, DAILY
     Route: 065
     Dates: start: 200905, end: 201902
  2. ZANTAC [Suspect]
     Active Substance: RANITIDINE HYDROCHLORIDE
     Indication: GASTROINTESTINAL DISORDER PROPHYLAXIS
     Dosage: UNK UNKNOWN, UNKNOWN
     Route: 065
     Dates: start: 200905, end: 201902
  3. RANITIDINE HYDROCHLORIDE. [Suspect]
     Active Substance: RANITIDINE HYDROCHLORIDE
     Indication: GASTROINTESTINAL DISORDER PROPHYLAXIS
     Dosage: 150 MG, DAILY
     Route: 065
     Dates: start: 200905, end: 201902
  4. RANITIDINE. [Suspect]
     Active Substance: RANITIDINE
     Dosage: 300 MG, DAILY
     Route: 065
     Dates: start: 200905, end: 201902
  5. ZANTAC [Suspect]
     Active Substance: RANITIDINE HYDROCHLORIDE
     Indication: GASTROINTESTINAL DISORDER PROPHYLAXIS
     Dosage: UNK UNKNOWN, UNKNOWN
     Route: 065
     Dates: start: 200905, end: 201902
  6. RANITIDINE. [Suspect]
     Active Substance: RANITIDINE
     Indication: GASTROINTESTINAL DISORDER PROPHYLAXIS
     Dosage: 150 MG, DAILY
     Route: 065
     Dates: start: 200905, end: 201902

REACTIONS (2)
  - Colorectal cancer stage IV [Not Recovered/Not Resolved]
  - Lung carcinoma cell type unspecified stage IV [Not Recovered/Not Resolved]

NARRATIVE: CASE EVENT DATE: 20181211
